FAERS Safety Report 14910614 (Version 1)
Quarter: 2018Q2

REPORT INFORMATION
  Report Type: Spontaneous
  Country: US (occurrence: US)
  Receive Date: 20180430
  Receipt Date: 20180430
  Transmission Date: 20180711
  Serious: Yes (Life-Threatening, Hospitalization)
  Sender: FDA-Public Use
  Company Number: None

PATIENT
  Age: 48 Year
  Sex: Male
  Weight: 86 kg

DRUGS (4)
  1. NALOXONE 2 MG [Concomitant]
     Dates: start: 20170114, end: 20170114
  2. LABETALOL [Suspect]
     Active Substance: LABETALOL\LABETALOL HYDROCHLORIDE
     Indication: HYPERTENSION
     Dosage: ?          OTHER FREQUENCY:2 MG/MINUTE;?
     Route: 041
     Dates: start: 20170114, end: 20170114
  3. LABETALOL [Suspect]
     Active Substance: LABETALOL\LABETALOL HYDROCHLORIDE
     Indication: DRUG ABUSE
     Dosage: ?          OTHER FREQUENCY:2 MG/MINUTE;?
     Route: 041
     Dates: start: 20170114, end: 20170114
  4. LABETALOL [Suspect]
     Active Substance: LABETALOL\LABETALOL HYDROCHLORIDE
     Indication: TACHYCARDIA
     Dosage: ?          OTHER FREQUENCY:2 MG/MINUTE;?
     Route: 041
     Dates: start: 20170114, end: 20170114

REACTIONS (3)
  - Cardio-respiratory arrest [None]
  - Infusion related reaction [None]
  - Cardiac arrest [None]

NARRATIVE: CASE EVENT DATE: 20170114
